FAERS Safety Report 13288619 (Version 1)
Quarter: 2017Q1

REPORT INFORMATION
  Report Type: Spontaneous
  Country: CH (occurrence: CH)
  Receive Date: 20170302
  Receipt Date: 20170302
  Transmission Date: 20170428
  Serious: Yes (Hospitalization, Disabling, Other)
  Sender: FDA-Public Use
  Company Number: CH-ABBVIE-17P-151-1891477-00

PATIENT
  Age: 77 Year
  Sex: Female
  Weight: 60 kg

DRUGS (2)
  1. HUMIRA [Suspect]
     Active Substance: ADALIMUMAB
     Indication: RHEUMATOID ARTHRITIS
     Route: 058
     Dates: start: 2004, end: 201610
  2. METHOTREXATE. [Concomitant]
     Active Substance: METHOTREXATE
     Indication: PRODUCT USED FOR UNKNOWN INDICATION
     Dates: start: 1995

REACTIONS (9)
  - Congestive cardiomyopathy [Not Recovered/Not Resolved]
  - Coronary artery stenosis [Unknown]
  - Dyspnoea exertional [Unknown]
  - Left ventricular failure [Not Recovered/Not Resolved]
  - Congestive cardiomyopathy [Unknown]
  - Cardiogenic shock [Unknown]
  - Septic shock [Unknown]
  - Escherichia pyelonephritis [Unknown]
  - Chest discomfort [Unknown]

NARRATIVE: CASE EVENT DATE: 201610
